FAERS Safety Report 17484068 (Version 7)
Quarter: 2020Q3

REPORT INFORMATION
  Report Type: Spontaneous
  Country: US (occurrence: US)
  Receive Date: 20200302
  Receipt Date: 20200730
  Transmission Date: 20201102
  Serious: No
  Sender: FDA-Public Use
  Company Number: US-ACTELION-A-NJ2020-202593

PATIENT
  Age: 15 Year
  Sex: Male
  Weight: 62.59 kg

DRUGS (3)
  1. OPSUMIT [Suspect]
     Active Substance: MACITENTAN
     Indication: PULMONARY ARTERIAL HYPERTENSION
     Dosage: 10 MG, QD
     Route: 048
  2. SILDENAFIL CITRATE. [Concomitant]
     Active Substance: SILDENAFIL CITRATE
  3. ORENITRAM [Suspect]
     Active Substance: TREPROSTINIL
     Indication: PRODUCT USED FOR UNKNOWN INDICATION
     Route: 065

REACTIONS (18)
  - Hypersomnia [Unknown]
  - Dyspnoea [Unknown]
  - Loss of personal independence in daily activities [Unknown]
  - Palpitations [Unknown]
  - Abdominal discomfort [Unknown]
  - General physical health deterioration [Unknown]
  - Feeling abnormal [Unknown]
  - Epistaxis [Unknown]
  - Swelling face [Unknown]
  - Gastroenteritis viral [Unknown]
  - Vomiting [Unknown]
  - Pulmonary arterial hypertension [Unknown]
  - Peripheral swelling [Unknown]
  - Headache [Recovered/Resolved]
  - Condition aggravated [Unknown]
  - Nausea [Unknown]
  - Skin discolouration [Unknown]
  - Pain in jaw [Recovered/Resolved]

NARRATIVE: CASE EVENT DATE: 20200222
